FAERS Safety Report 4601420-2 (Version None)
Quarter: 2005Q1

REPORT INFORMATION
  Report Type: 
  Country: None (occurrence: None)
  Receive Date: 20050308
  Receipt Date: 20050224
  Transmission Date: 20050727
  Serious: Yes (Hospitalization)
  Sender: FDA-Public Use
  Company Number: CH-SANOFI-SYNTHELABO-A01200501061

PATIENT
  Age: 44 Year
  Sex: Male

DRUGS (5)
  1. DEXAMETHASONE [Concomitant]
     Indication: DRUG USE FOR UNKNOWN INDICATION
     Route: 065
  2. NAVOBAN [Concomitant]
     Indication: DRUG USE FOR UNKNOWN INDICATION
     Route: 065
  3. XELODA [Suspect]
     Indication: COLON CANCER METASTATIC
     Route: 041
     Dates: start: 20050126, end: 20050126
  4. ERBITUX [Suspect]
     Indication: COLON CANCER METASTATIC
     Route: 041
     Dates: start: 20050114, end: 20050114
  5. ELOXATIN [Suspect]
     Indication: COLON CANCER METASTATIC
     Route: 041
     Dates: start: 20050114, end: 20050114

REACTIONS (6)
  - ABDOMINAL PAIN [None]
  - BLOOD BILIRUBIN INCREASED [None]
  - CHOLESTASIS [None]
  - HEPATITIS ACUTE [None]
  - HEPATOCELLULAR DAMAGE [None]
  - JAUNDICE [None]
